FAERS Safety Report 9097366 (Version 4)
Quarter: 2013Q2

REPORT INFORMATION
  Report Type: Spontaneous
  Country: JP (occurrence: JP)
  Receive Date: 20130212
  Receipt Date: 20130415
  Transmission Date: 20140414
  Serious: Yes (Other)
  Sender: FDA-Public Use
  Company Number: JP-PFIZER INC-2013051603

PATIENT
  Age: 75 Year
  Sex: Male

DRUGS (6)
  1. VFEND [Suspect]
     Indication: PULMONARY MYCOSIS
     Dosage: 200 MG DAILY
     Route: 048
  2. THEO-DUR [Concomitant]
     Dosage: 200 MG, DAILY
     Route: 048
     Dates: start: 201012
  3. ERYTHROCIN [Concomitant]
     Dosage: 400 MG, DAILY
     Route: 048
     Dates: start: 201112
  4. PARIET [Concomitant]
     Dosage: 10 MG, DAILY
     Route: 048
     Dates: start: 201212
  5. MICARDIS [Concomitant]
     Dosage: 40 MG, DAILY
     Route: 048
     Dates: start: 201111
  6. MYSLEE [Concomitant]
     Dosage: 5 MG, DAILY
     Route: 048
     Dates: start: 201302

REACTIONS (2)
  - Haemorrhage subcutaneous [Recovered/Resolved]
  - Injection site haemorrhage [Recovered/Resolved]
